FAERS Safety Report 11631661 (Version 2)
Quarter: 2016Q2

REPORT INFORMATION
  Report Type: Spontaneous
  Country: GB (occurrence: GB)
  Receive Date: 20151015
  Receipt Date: 20160615
  Transmission Date: 20160815
  Serious: Yes (Hospitalization)
  Sender: FDA-Public Use
  Company Number: GB-AUROBINDO-AUR-APL-2015-09030

PATIENT
  Age: 86 Year
  Sex: Male

DRUGS (2)
  1. DONEPEZIL 5 MG [Suspect]
     Active Substance: DONEPEZIL
     Indication: DEMENTIA ALZHEIMER^S TYPE
     Dosage: 5 MG, ONCE A DAY
     Route: 065
  2. DONEPEZIL 5 MG [Suspect]
     Active Substance: DONEPEZIL
     Dosage: 10 MG, ONCE A DAY
     Route: 065

REACTIONS (12)
  - Haemodynamic instability [Recovered/Resolved]
  - Faeces discoloured [Recovered/Resolved]
  - Abdominal tenderness [Recovered/Resolved]
  - Upper gastrointestinal haemorrhage [Recovered/Resolved]
  - Melaena [Recovered/Resolved]
  - Duodenal ulcer [Recovered/Resolved]
  - Syncope [Recovered/Resolved]
  - Blood urea increased [Recovered/Resolved]
  - Hypovolaemic shock [Recovered/Resolved]
  - Anaemia [Recovered/Resolved]
  - Dizziness postural [Recovered/Resolved]
  - Blood pressure orthostatic abnormal [Recovered/Resolved]
